FAERS Safety Report 25473892 (Version 1)
Quarter: 2025Q2

REPORT INFORMATION
  Report Type: Spontaneous
  Country: US (occurrence: None)
  Receive Date: 20250623
  Receipt Date: 20250623
  Transmission Date: 20250716
  Serious: No
  Sender: FDA-CTU
  Company Number: None

PATIENT
  Sex: Female
  Weight: 70.65 kg

DRUGS (1)
  1. KISQALI [Suspect]
     Active Substance: RIBOCICLIB SUCCINATE
     Indication: Breast cancer female
     Dosage: 400 UG MICROGRAM(S) DAILY ORAL
     Route: 048
     Dates: start: 20250529, end: 20250611

REACTIONS (2)
  - Rash erythematous [None]
  - Pruritus [None]
